FAERS Safety Report 15963563 (Version 5)
Quarter: 2023Q1

REPORT INFORMATION
  Report Type: Spontaneous
  Country: US (occurrence: US)
  Receive Date: 20190214
  Receipt Date: 20230208
  Transmission Date: 20230418
  Serious: No
  Sender: FDA-Public Use
  Company Number: US-PFIZER INC-2019067138

PATIENT
  Age: 66 Year
  Sex: Female

DRUGS (1)
  1. XELJANZ XR [Suspect]
     Active Substance: TOFACITINIB CITRATE
     Dosage: 11 MG

REACTIONS (9)
  - Sinus disorder [Unknown]
  - Pain [Unknown]
  - Memory impairment [Unknown]
  - Illness [Unknown]
  - Vision blurred [Unknown]
  - Eye disorder [Unknown]
  - Bronchitis [Recovered/Resolved]
  - Influenza [Unknown]
  - Musculoskeletal stiffness [Unknown]
